FAERS Safety Report 16424759 (Version 1)
Quarter: 2019Q2

REPORT INFORMATION
  Report Type: Spontaneous
  Country: CN (occurrence: CN)
  Receive Date: 20190613
  Receipt Date: 20190613
  Transmission Date: 20190711
  Serious: Yes (Other)
  Sender: FDA-Public Use
  Company Number: CN-PFIZER INC-2019247559

PATIENT
  Age: 20 Day
  Sex: Female
  Weight: 3.42 kg

DRUGS (2)
  1. FLUCONAZOLE. [Suspect]
     Active Substance: FLUCONAZOLE
     Indication: ANTIFUNGAL TREATMENT
     Dosage: 20 MG, 1X/DAY (THE DOSE OF FLUCONAZOLE CAPSULES WAS REDUCED TO 20 MG)
     Route: 048
     Dates: start: 20190410, end: 20190414
  2. FLUCONAZOLE. [Suspect]
     Active Substance: FLUCONAZOLE
     Indication: THERAPEUTIC PROCEDURE
     Dosage: 32 MG, 1X/DAY (12 MG/KG, 32 MG)
     Route: 048
     Dates: start: 20190328, end: 20190409

REACTIONS (3)
  - Haematochezia [Recovered/Resolved]
  - Frequent bowel movements [Recovered/Resolved]
  - Gastrointestinal disorder [Recovered/Resolved]

NARRATIVE: CASE EVENT DATE: 20190410
